FAERS Safety Report 16467149 (Version 1)
Quarter: 2019Q2

REPORT INFORMATION
  Report Type: Spontaneous
  Country: GB (occurrence: GB)
  Receive Date: 20190624
  Receipt Date: 20190624
  Transmission Date: 20190711
  Serious: Yes (Hospitalization)
  Sender: FDA-Public Use
  Company Number: GB-ACCORD-134656

PATIENT
  Age: 80 Year
  Sex: Female
  Weight: 57 kg

DRUGS (16)
  1. MIRTAZAPINE. [Concomitant]
     Active Substance: MIRTAZAPINE
  2. LACTULOSE. [Concomitant]
     Active Substance: LACTULOSE
  3. FENTANYL. [Concomitant]
     Active Substance: FENTANYL
  4. FLUOXETINE [Concomitant]
     Active Substance: FLUOXETINE HYDROCHLORIDE
  5. ZOMORPH [Concomitant]
     Active Substance: MORPHINE SULFATE
  6. PROPRANOLOL [Concomitant]
     Active Substance: PROPRANOLOL HYDROCHLORIDE
  7. CARBOMER [Concomitant]
     Active Substance: CARBOMER
  8. RAMIPRIL. [Suspect]
     Active Substance: RAMIPRIL
     Indication: ESSENTIAL HYPERTENSION
     Dosage: IN THE MORNING
     Route: 048
     Dates: start: 20190108
  9. LANSOPRAZOLE. [Concomitant]
     Active Substance: LANSOPRAZOLE
  10. PARACETAMOL [Concomitant]
     Active Substance: ACETAMINOPHEN
  11. ACETYLSALICYLIC ACID [Concomitant]
     Active Substance: ASPIRIN
  12. ADCAL-D3 [Concomitant]
     Active Substance: CALCIUM CARBONATE\CHOLECALCIFEROL
  13. IBUPROFEN. [Concomitant]
     Active Substance: IBUPROFEN
  14. GABAPENTIN. [Concomitant]
     Active Substance: GABAPENTIN
  15. SENNA ALEXANDRINA [Concomitant]
     Active Substance: SENNA LEAF
  16. CLONAZEPAM. [Concomitant]
     Active Substance: CLONAZEPAM

REACTIONS (1)
  - Fall [Unknown]

NARRATIVE: CASE EVENT DATE: 20190506
